FAERS Safety Report 19567153 (Version 1)
Quarter: 2021Q3

REPORT INFORMATION
  Report Type: Spontaneous
  Country: US (occurrence: US)
  Receive Date: 20210716
  Receipt Date: 20210716
  Transmission Date: 20211014
  Serious: Yes (Life-Threatening, Hospitalization, Other)
  Sender: FDA-Public Use
  Company Number: US-ACCORD-231820

PATIENT
  Age: 40 Year
  Sex: Male

DRUGS (3)
  1. FLUOROURACIL. [Suspect]
     Active Substance: FLUOROURACIL
     Indication: METASTATIC GASTRIC CANCER
  2. FOLINIC ACID [Concomitant]
     Active Substance: LEUCOVORIN
     Indication: METASTATIC GASTRIC CANCER
  3. OXALIPLATIN. [Concomitant]
     Active Substance: OXALIPLATIN
     Indication: METASTATIC GASTRIC CANCER

REACTIONS (1)
  - Arteriospasm coronary [Not Recovered/Not Resolved]
